FAERS Safety Report 16316322 (Version 1)
Quarter: 2019Q2

REPORT INFORMATION
  Report Type: Spontaneous
  Country: FR (occurrence: FR)
  Receive Date: 20190515
  Receipt Date: 20190515
  Transmission Date: 20190711
  Serious: Yes (Hospitalization, Other)
  Sender: FDA-Public Use
  Company Number: FR-GLAXOSMITHKLINE-FR2019084868

PATIENT
  Age: 41 Year
  Sex: Female

DRUGS (3)
  1. KARDEGIC [Suspect]
     Active Substance: ASPIRIN DL-LYSINE
     Indication: PROPHYLAXIS
     Dosage: UNK
     Route: 048
     Dates: end: 201904
  2. BELIMUMAB [Suspect]
     Active Substance: BELIMUMAB
     Indication: AUTOIMMUNE HEPATITIS
     Dosage: 10 MG/KG, UNK
     Route: 058
     Dates: start: 201810
  3. TAHOR [Suspect]
     Active Substance: ATORVASTATIN CALCIUM
     Indication: PROPHYLAXIS
     Dosage: UNK
     Route: 048
     Dates: end: 201903

REACTIONS (1)
  - Hepatocellular injury [Not Recovered/Not Resolved]

NARRATIVE: CASE EVENT DATE: 201902
